FAERS Safety Report 8113208-9 (Version None)
Quarter: 2012Q1

REPORT INFORMATION
  Report Type: 
  Country: None (occurrence: None)
  Receive Date: 20120203
  Receipt Date: 20120123
  Transmission Date: 20120608
  Serious: Yes (Hospitalization, Other)
  Sender: FDA-Public Use
  Company Number: PHEH2011US011053

PATIENT
  Sex: Male
  Weight: 90 kg

DRUGS (13)
  1. XANAX [Concomitant]
     Dosage: UNK UKN, UNK
  2. ASPARTAME [Concomitant]
     Dosage: 15 UNITS 3 TIMES A DAY WITH MEALS,
  3. SENSIPAR [Concomitant]
     Dosage: 90 MG, UNK
  4. NORCO [Concomitant]
     Dosage: 1 DF, (10/325 MG )
  5. MYFORTIC [Suspect]
     Indication: RENAL TRANSPLANT
     Dosage: 360 MG, BID
     Route: 048
     Dates: start: 20110612, end: 20110912
  6. ASPIRIN [Concomitant]
     Dosage: 81 MG, UNK
  7. PROTONIX [Concomitant]
     Dosage: 40 MG, UNK
  8. PROGRAF [Concomitant]
     Dosage: 3 MG, UNK
  9. AUGMENTIN '125' [Suspect]
     Dosage: UNK UKN, UNK
     Dates: start: 20111126
  10. BACTRIM [Suspect]
     Dosage: UNK UKN, UNK
     Dates: start: 20111126
  11. KEFLEX [Concomitant]
     Dosage: 500 MG, EVERY 6 HOURS ACTUALLY FOR 9 MORE DAYS
     Dates: start: 20111219
  12. PREDNISONE TAB [Concomitant]
     Dosage: 10 MG, BID
  13. LEVEMIR [Concomitant]
     Dosage: 30 UNITS TWICE A DAY

REACTIONS (14)
  - COUGH [None]
  - PAIN IN EXTREMITY [None]
  - VASCULAR CALCIFICATION [None]
  - LOCALISED INFECTION [None]
  - STAPHYLOCOCCAL INFECTION [None]
  - RENAL PAIN [None]
  - PERIPHERAL VASCULAR DISORDER [None]
  - RENAL GRAFT LOSS [None]
  - FEMORAL ARTERY OCCLUSION [None]
  - ABDOMINAL PAIN [None]
  - OROPHARYNGEAL PAIN [None]
  - VOMITING [None]
  - NAUSEA [None]
  - INTERMITTENT CLAUDICATION [None]
